FAERS Safety Report 6690183-5 (Version None)
Quarter: 2010Q2

REPORT INFORMATION
  Report Type: 
  Country: None (occurrence: None)
  Receive Date: 20100421
  Receipt Date: 20100414
  Transmission Date: 20101027
  Serious: Yes (Other)
  Sender: FDA-Public Use
  Company Number: US-BAYER-201022528GPV

PATIENT

DRUGS (1)
  1. SORAFENIB [Suspect]
     Indication: SARCOMA UTERUS
     Dosage: UNIT DOSE: 200 MG
     Route: 048

REACTIONS (1)
  - HYPOKALAEMIA [None]
